FAERS Safety Report 7497210-6 (Version None)
Quarter: 2011Q2

REPORT INFORMATION
  Report Type: 
  Country: None (occurrence: None)
  Receive Date: 20110523
  Receipt Date: 20110519
  Transmission Date: 20111010
  Serious: Yes (Other)
  Sender: FDA-Public Use
  Company Number: US-PFIZER INC-2011109147

PATIENT
  Sex: Female
  Weight: 61.224 kg

DRUGS (3)
  1. DILTIAZEM [Concomitant]
     Indication: HYPERTENSION
     Dosage: 120 MG, DAILY
     Route: 048
  2. CHANTIX [Suspect]
     Indication: SMOKING CESSATION THERAPY
     Dosage: 0.5 MG, DAILY
     Route: 048
     Dates: start: 20110416, end: 20110101
  3. CHANTIX [Suspect]
     Dosage: 1 MG, UNK
     Route: 048
     Dates: start: 20110101, end: 20110101

REACTIONS (5)
  - OEDEMA MOUTH [None]
  - ABDOMINAL DISTENSION [None]
  - VOMITING [None]
  - DYSPNOEA [None]
  - LIP SWELLING [None]
